FAERS Safety Report 9381374 (Version 3)
Quarter: 2013Q4

REPORT INFORMATION
  Report Type: Spontaneous
  Country: US (occurrence: US)
  Receive Date: 20130703
  Receipt Date: 20131001
  Transmission Date: 20140711
  Serious: No
  Sender: FDA-Public Use
  Company Number: US-JNJFOC-20130617194

PATIENT
  Sex: Female
  Weight: 65.77 kg

DRUGS (3)
  1. INVEGA [Suspect]
     Indication: NEURALGIA
     Route: 048
     Dates: start: 201207, end: 201303
  2. INVEGA [Suspect]
     Indication: ANXIETY
     Route: 048
     Dates: start: 201207, end: 201303
  3. INVEGA [Suspect]
     Indication: AFFECTIVE DISORDER
     Route: 048
     Dates: start: 201207, end: 201303

REACTIONS (1)
  - Hypercholesterolaemia [Recovered/Resolved]
